FAERS Safety Report 8381783-5 (Version None)
Quarter: 2012Q2

REPORT INFORMATION
  Report Type: 
  Country: None (occurrence: None)
  Receive Date: 20120427
  Receipt Date: 20120418
  Transmission Date: 20120825
  Serious: No
  Sender: FDA-Public Use
  Company Number: CA-145093

PATIENT
  Sex: Female

DRUGS (3)
  1. SOLUCORTEF [Concomitant]
  2. BENADRYL [Concomitant]
  3. WINRHO SDF [Suspect]
     Dosage: (5000 ?G)
     Dates: start: 20090818

REACTIONS (8)
  - CHILLS [None]
  - HEADACHE [None]
  - TACHYCARDIA [None]
  - ANXIETY [None]
  - FLUSHING [None]
  - NAUSEA [None]
  - PAIN [None]
  - HYPERSENSITIVITY [None]
